FAERS Safety Report 5909117-3 (Version None)
Quarter: 2008Q3

REPORT INFORMATION
  Report Type: 
  Country: None (occurrence: None)
  Receive Date: 20080929
  Receipt Date: 20080918
  Transmission Date: 20090109
  Serious: Yes (Hospitalization)
  Sender: FDA-Public Use
  Company Number: CHPA2008US15932

PATIENT
  Sex: Male

DRUGS (3)
  1. MAALOX MS TOTAL STOMACH RELIEF (NCH) (BISMUTH SUBSALICYLATE) SUSPENSIO [Suspect]
     Indication: ABDOMINAL PAIN UPPER
     Dosage: 6 TSP, QD, ORAL
     Route: 048
     Dates: start: 20080914, end: 20080916
  2. MAALOX MS TOTAL STOMACH RELIEF (NCH) (BISMUTH SUBSALICYLATE) SUSPENSIO [Suspect]
     Indication: DIARRHOEA
     Dosage: 6 TSP, QD, ORAL
     Route: 048
     Dates: start: 20080914, end: 20080916
  3. MAALOX MS TOTAL STOMACH RELIEF (NCH) (BISMUTH SUBSALICYLATE) SUSPENSIO [Suspect]
     Indication: DYSPEPSIA
     Dosage: 6 TSP, QD, ORAL
     Route: 048
     Dates: start: 20080914, end: 20080916

REACTIONS (4)
  - ABDOMINAL PAIN UPPER [None]
  - CONDITION AGGRAVATED [None]
  - DIARRHOEA [None]
  - FAECES DISCOLOURED [None]
